FAERS Safety Report 4582843-7 (Version None)
Quarter: 2005Q1

REPORT INFORMATION
  Report Type: 
  Country: None (occurrence: None)
  Receive Date: 20050215
  Receipt Date: 20050201
  Transmission Date: 20050727
  Serious: Yes (Hospitalization)
  Sender: FDA-Public Use
  Company Number: CH-AMGEN-UK111058

PATIENT
  Sex: Male
  Weight: 22 kg

DRUGS (2)
  1. KINERET [Suspect]
     Indication: PRE-EXISTING DISEASE
     Route: 058
     Dates: start: 20040401
  2. PROXEN [Concomitant]
     Route: 065

REACTIONS (4)
  - BRAIN ABSCESS [None]
  - CONVULSION [None]
  - ENCEPHALITIS [None]
  - INFLUENZA SEROLOGY POSITIVE [None]
